FAERS Safety Report 12733273 (Version 1)
Quarter: 2016Q3

REPORT INFORMATION
  Report Type: Spontaneous
  Country: ES (occurrence: ES)
  Receive Date: 20160912
  Receipt Date: 20160912
  Transmission Date: 20161109
  Serious: Yes (Hospitalization)
  Sender: FDA-Public Use
  Company Number: ES-BAYER-2016-170611

PATIENT
  Age: 44 Year
  Sex: Female

DRUGS (1)
  1. NAPROXEN SODIUM ({= 220 MG) [Suspect]
     Active Substance: NAPROXEN SODIUM
     Indication: DYSMENORRHOEA

REACTIONS (6)
  - Mucous membrane disorder [Recovering/Resolving]
  - Skin hyperpigmentation [None]
  - Pyrexia [Recovering/Resolving]
  - Photosensitivity reaction [Recovering/Resolving]
  - Dermatitis bullous [Recovering/Resolving]
  - Malaise [Recovering/Resolving]
